FAERS Safety Report 11377369 (Version 1)
Quarter: 2015Q3

REPORT INFORMATION
  Report Type: Spontaneous
  Country: US (occurrence: US)
  Receive Date: 20150811
  Receipt Date: 20150811
  Transmission Date: 20151125
  Serious: No
  Sender: FDA-Public Use
  Company Number: US-ELI_LILLY_AND_COMPANY-US200811004447

PATIENT
  Age: 35 Year
  Sex: Female

DRUGS (4)
  1. HUMULIN R [Suspect]
     Active Substance: INSULIN HUMAN
     Dosage: 6 U, 2/D
  2. HUMULIN N [Suspect]
     Active Substance: INSULIN HUMAN
     Dosage: 6 U, DAILY (1/D)
  3. HUMULIN N [Suspect]
     Active Substance: INSULIN HUMAN
     Dosage: 4 U, DAILY (1/D)
  4. HUMULIN R [Suspect]
     Active Substance: INSULIN HUMAN
     Dosage: 4 U, 2/D

REACTIONS (1)
  - Foetal exposure during pregnancy [Recovered/Resolved]

NARRATIVE: CASE EVENT DATE: 20080625
